FAERS Safety Report 7773085-2 (Version None)
Quarter: 2011Q3

REPORT INFORMATION
  Report Type: 
  Country: None (occurrence: None)
  Receive Date: 20110922
  Receipt Date: 20100824
  Transmission Date: 20111222
  Serious: Yes (Other)
  Sender: FDA-Public Use
  Company Number: US-ASTRAZENECA-2008UW01210

PATIENT
  Age: 474 Month
  Sex: Female
  Weight: 53.5 kg

DRUGS (56)
  1. SEROQUEL [Suspect]
     Indication: ANXIETY
     Dosage: 200 MG - 800 MG
     Route: 048
     Dates: start: 19990101, end: 20070401
  2. SEROQUEL [Suspect]
     Route: 048
     Dates: start: 19990802
  3. SEROQUEL [Suspect]
     Dosage: 200 MG ONE TABLET IN MORNING AND THREE TABLETS AT NIGHT
     Route: 048
     Dates: start: 20060329
  4. LANSOPRAZOLE [Concomitant]
     Dates: start: 19990802
  5. ZYPREXA [Concomitant]
     Indication: ANXIETY
     Dates: start: 20040131
  6. ZYPREXA [Concomitant]
     Dates: start: 19800101
  7. SEROQUEL [Suspect]
     Indication: SLEEP DISORDER
     Dosage: 200 MG - 800 MG
     Route: 048
     Dates: start: 19990101, end: 20070401
  8. SEROQUEL [Suspect]
     Indication: SCHIZOPHRENIA
     Dosage: 200 MG - 800 MG
     Route: 048
     Dates: start: 19990101, end: 20070401
  9. SEROQUEL [Suspect]
     Route: 048
     Dates: start: 19990802
  10. SEROQUEL [Suspect]
     Dosage: 300 MG-600 MG
     Route: 048
     Dates: start: 20040502
  11. SEROQUEL [Suspect]
     Dosage: 300 MG-600 MG
     Route: 048
     Dates: start: 20040502
  12. SEROQUEL [Suspect]
     Route: 048
     Dates: start: 20050920
  13. SEROQUEL [Suspect]
     Dosage: 100-200 MG
     Route: 048
     Dates: start: 20050505, end: 20080229
  14. ZYPREXA [Concomitant]
     Dates: start: 19800101
  15. RISPERDAL [Concomitant]
     Indication: BIPOLAR DISORDER
     Dates: start: 20070101, end: 20070101
  16. RISPERDAL [Concomitant]
     Indication: SCHIZOPHRENIA
     Dates: start: 20070101, end: 20070101
  17. HALDOL [Concomitant]
     Dates: start: 19700101
  18. SEROQUEL [Suspect]
     Indication: BIPOLAR DISORDER
     Dosage: 200 MG - 800 MG
     Route: 048
     Dates: start: 19990101, end: 20070401
  19. SEROQUEL [Suspect]
     Route: 048
     Dates: start: 19990802
  20. SEROQUEL [Suspect]
     Route: 048
     Dates: start: 20050920
  21. SEROQUEL [Suspect]
     Dosage: 100-200 MG
     Route: 048
     Dates: start: 20050505, end: 20080229
  22. DILANTIN [Concomitant]
     Dates: start: 20040824
  23. ZYPREXA [Concomitant]
     Dates: start: 19800101
  24. SEROQUEL [Suspect]
     Dosage: 100-200 MG
     Route: 048
     Dates: start: 20050505, end: 20080229
  25. XANAX [Concomitant]
     Dates: start: 20040824
  26. LITHOBID [Concomitant]
     Dates: start: 20040202
  27. RISPERDAL [Concomitant]
     Indication: ANXIETY
     Dates: start: 20070101, end: 20070101
  28. RISPERDAL [Concomitant]
     Indication: DEPRESSION
     Dates: start: 20070101, end: 20070101
  29. SEROQUEL [Suspect]
     Route: 048
     Dates: start: 19990802
  30. SEROQUEL [Suspect]
     Dosage: 300 MG-600 MG
     Route: 048
     Dates: start: 20040502
  31. SEROQUEL [Suspect]
     Route: 048
     Dates: start: 20050920
  32. SEROQUEL [Suspect]
     Dosage: 200 MG ONE TABLET IN MORNING AND THREE TABLETS AT NIGHT
     Route: 048
     Dates: start: 20060329
  33. SEROQUEL [Suspect]
     Dosage: 200 MG ONE TABLET IN MORNING AND THREE TABLETS AT NIGHT
     Route: 048
     Dates: start: 20060329
  34. ELAVIL [Concomitant]
     Indication: APPETITE DISORDER
     Dates: start: 19980111
  35. ZYPREXA [Concomitant]
     Indication: DEPRESSION
     Dates: start: 20040131
  36. SEROQUEL [Suspect]
     Dosage: 200 MG ONE TABLET IN MORNING AND THREE TABLETS AT NIGHT
     Route: 048
     Dates: start: 20060329
  37. ENALAPRIL MAL [Concomitant]
     Dates: start: 19990802
  38. ZYPREXA [Concomitant]
     Dates: start: 19800101
  39. ISOSORBIDE DINITRATE [Concomitant]
     Dates: start: 19990802
  40. SEROQUEL [Suspect]
     Dosage: 300 MG-600 MG
     Route: 048
     Dates: start: 20040502
  41. SEROQUEL [Suspect]
     Dosage: 300 MG-600 MG
     Route: 048
     Dates: start: 20040502
  42. SEROQUEL [Suspect]
     Route: 048
     Dates: start: 20050920
  43. SEROQUEL [Suspect]
     Route: 048
     Dates: start: 20050920
  44. SEROQUEL [Suspect]
     Dosage: 200 MG ONE TABLET IN MORNING AND THREE TABLETS AT NIGHT
     Route: 048
     Dates: start: 20060329
  45. SEROQUEL [Suspect]
     Dosage: 100-200 MG
     Route: 048
     Dates: start: 20050505, end: 20080229
  46. SEROQUEL [Suspect]
     Dosage: 100-200 MG
     Route: 048
     Dates: start: 20050505, end: 20080229
  47. GABAPENTIN [Concomitant]
     Dates: start: 19990802
  48. NOVOLIN 70/30 [Concomitant]
     Dosage: 10 UNITS IN MORNING AND 15 UNITS AT NIGHT
     Dates: start: 20030625
  49. ZYPREXA [Concomitant]
     Indication: BIPOLAR DISORDER
     Dates: start: 20040131
  50. GLUCOPHAGE [Concomitant]
     Dates: start: 19980111
  51. SEROQUEL [Suspect]
     Indication: DEPRESSION
     Dosage: 200 MG - 800 MG
     Route: 048
     Dates: start: 19990101, end: 20070401
  52. SEROQUEL [Suspect]
     Route: 048
     Dates: start: 19990802
  53. AMITRIPTYLINE HCL [Concomitant]
     Dates: start: 19990802
  54. ZYPREXA [Concomitant]
     Indication: SCHIZOPHRENIA
     Dates: start: 20040131
  55. CLONAZEPAM [Concomitant]
     Dates: start: 20040202
  56. NITROGLYCERIN [Concomitant]
     Dates: start: 19990802

REACTIONS (6)
  - DIABETIC COMA [None]
  - TYPE 2 DIABETES MELLITUS [None]
  - TYPE 1 DIABETES MELLITUS [None]
  - DIABETIC KETOACIDOSIS [None]
  - DIABETIC COMPLICATION [None]
  - DIABETES MELLITUS INADEQUATE CONTROL [None]
